FAERS Safety Report 7639523-0 (Version None)
Quarter: 2011Q3

REPORT INFORMATION
  Report Type: 
  Country: None (occurrence: None)
  Receive Date: 20110727
  Receipt Date: 20110719
  Transmission Date: 20111222
  Serious: Yes (Death, Hospitalization)
  Sender: FDA-Public Use
  Company Number: JP-GLAXOSMITHKLINE-B0715570A

PATIENT
  Sex: Male
  Weight: 54 kg

DRUGS (16)
  1. FLUDARA [Suspect]
     Indication: ALLOGENIC BONE MARROW TRANSPLANTATION THERAPY
     Dosage: 39MG PER DAY
     Route: 042
     Dates: start: 20090923, end: 20090927
  2. AMBISOME [Suspect]
     Indication: PRODUCT USED FOR UNKNOWN INDICATION
     Dosage: 150MG PER DAY
     Route: 042
     Dates: start: 20091005, end: 20091006
  3. PROGRAF [Suspect]
     Indication: IMMUNOSUPPRESSION
     Dosage: 2MG PER DAY
     Route: 065
     Dates: start: 20090928, end: 20091031
  4. VFEND [Concomitant]
     Dosage: 400MG PER DAY
     Route: 048
     Dates: start: 20090901, end: 20090928
  5. RAMELTEON [Concomitant]
     Dosage: .3MG PER DAY
     Route: 042
     Dates: start: 20090923, end: 20090927
  6. RIZABEN [Concomitant]
     Dosage: 300MG PER DAY
     Route: 048
     Dates: start: 20090901, end: 20090928
  7. FUROSEMIDE [Concomitant]
     Dosage: 20MG PER DAY
     Route: 048
     Dates: start: 20090924, end: 20091030
  8. ALKERAN [Suspect]
     Indication: ALLOGENIC BONE MARROW TRANSPLANTATION THERAPY
     Dosage: 139MG PER DAY
     Route: 042
     Dates: start: 20090926, end: 20090927
  9. RABEPRAZOLE SODIUM [Concomitant]
     Dosage: 10MG PER DAY
     Route: 048
     Dates: start: 20090901, end: 20091031
  10. PREDNISOLONE [Suspect]
     Indication: PRODUCT USED FOR UNKNOWN INDICATION
     Dosage: 2IUAX PER DAY
     Route: 065
     Dates: start: 20091007, end: 20091030
  11. GASMOTIN [Concomitant]
     Dosage: 15MG PER DAY
     Route: 048
     Dates: start: 20090901, end: 20091009
  12. MEROPENEM [Concomitant]
     Dosage: 1MG PER DAY
     Route: 042
     Dates: start: 20090915, end: 20091026
  13. FUNGUARD [Concomitant]
     Dosage: 150MG PER DAY
     Route: 042
     Dates: start: 20090918, end: 20091030
  14. BACTRIM [Concomitant]
     Dosage: 1IUAX PER DAY
     Route: 048
     Dates: start: 20090901, end: 20090928
  15. URSO 250 [Concomitant]
     Dosage: 600MG PER DAY
     Route: 048
     Dates: start: 20090901, end: 20091031
  16. ZOVIRAX [Concomitant]
     Dosage: 1000MG PER DAY
     Route: 048
     Dates: start: 20090923, end: 20091029

REACTIONS (2)
  - PNEUMONIA TOXOPLASMAL [None]
  - RENAL IMPAIRMENT [None]
